FAERS Safety Report 10727123 (Version 1)
Quarter: 2015Q1

REPORT INFORMATION
  Report Type: Spontaneous
  Country: US (occurrence: US)
  Receive Date: 20150121
  Receipt Date: 20150121
  Transmission Date: 20150721
  Serious: No
  Sender: FDA-Public Use
  Company Number: US-009507513-1501USA000450

PATIENT
  Sex: Female

DRUGS (1)
  1. ASMANEX HFA [Suspect]
     Active Substance: MOMETASONE FUROATE
     Dosage: 220 MCG, 2 PUFFS DAILY
     Route: 055

REACTIONS (3)
  - Cough [Unknown]
  - Drug administration error [Unknown]
  - Wheezing [Unknown]
